FAERS Safety Report 14590263 (Version 2)
Quarter: 2018Q1

REPORT INFORMATION
  Report Type: Spontaneous
  Country: US (occurrence: US)
  Receive Date: 20180302
  Receipt Date: 20180312
  Transmission Date: 20180509
  Serious: No
  Sender: FDA-Public Use
  Company Number: US-PFIZER INC-2018083946

PATIENT
  Sex: Female
  Weight: 77.11 kg

DRUGS (3)
  1. NIFEDIPINE. [Suspect]
     Active Substance: NIFEDIPINE
     Dosage: 30 MG, ONCE DAILY
     Route: 048
     Dates: start: 2012, end: 2012
  2. NIFEDIPINE. [Suspect]
     Active Substance: NIFEDIPINE
     Indication: CARDIAC DISORDER
     Dosage: 30 MG, ONCE DAILY
     Route: 048
  3. PROCARDIA XL [Suspect]
     Active Substance: NIFEDIPINE
     Indication: CARDIAC DISORDER
     Dosage: UNK

REACTIONS (6)
  - Drug dispensing error [Unknown]
  - Drug ineffective [Recovered/Resolved]
  - Asthenia [Recovered/Resolved]
  - Chest pain [Unknown]
  - Blood pressure inadequately controlled [Not Recovered/Not Resolved]
  - Peripheral swelling [Recovered/Resolved]
